FAERS Safety Report 6937577-8 (Version None)
Quarter: 2010Q3

REPORT INFORMATION
  Report Type: 
  Country: None (occurrence: None)
  Receive Date: 20100823
  Receipt Date: 20100810
  Transmission Date: 20110219
  Serious: Yes (Hospitalization)
  Sender: FDA-Public Use
  Company Number: FR-ELI_LILLY_AND_COMPANY-FR201007006675

PATIENT
  Age: 57 Year
  Sex: Female
  Weight: 51 kg

DRUGS (9)
  1. FORTEO [Suspect]
     Indication: OSTEOPOROSIS
     Dosage: 20 UG, DAILY (1/D)
     Route: 058
     Dates: start: 20100407
  2. FENTANYL CITRATE [Concomitant]
     Dosage: UNK, UNKNOWN
     Route: 065
  3. LEXOMIL [Concomitant]
     Dosage: UNK, UNKNOWN
     Route: 065
  4. CYMBALTA [Concomitant]
     Dosage: UNK, UNKNOWN
     Route: 065
  5. PARACETAMOL [Concomitant]
     Dosage: UNK, UNKNOWN
     Route: 065
  6. APRANAX [Concomitant]
     Dosage: UNK, UNKNOWN
     Route: 065
  7. CACIT D3 [Concomitant]
     Dosage: UNK, UNKNOWN
     Route: 065
  8. UVEDOSE [Concomitant]
     Dosage: UNK, UNKNOWN
     Route: 065
  9. METOJECT [Concomitant]
     Dosage: 15 MG, UNKNOWN
     Route: 065

REACTIONS (1)
  - FRACTURED SACRUM [None]
